APPROVED DRUG PRODUCT: BIORPHEN
Active Ingredient: PHENYLEPHRINE HYDROCHLORIDE
Strength: 10MG/ML (10MG/ML)
Dosage Form/Route: SOLUTION;INTRAVENOUS
Application: N212909 | Product #002
Applicant: DR REDDYS LABORATORIES SA
Approved: Mar 11, 2021 | RLD: Yes | RS: No | Type: DISCN